FAERS Safety Report 8064490-8 (Version None)
Quarter: 2012Q1

REPORT INFORMATION
  Report Type: 
  Country: None (occurrence: None)
  Receive Date: 20120123
  Receipt Date: 20120118
  Transmission Date: 20120608
  Serious: Yes (Life-Threatening)
  Sender: FDA-Public Use
  Company Number: FR-ASTRAZENECA-2012SE03512

PATIENT
  Age: 75 Year
  Sex: Female

DRUGS (8)
  1. DIPRIVAN [Suspect]
     Indication: GENERAL ANAESTHESIA
     Dosage: ONCE/SINGLE ADMINISTRATION
     Route: 042
     Dates: start: 20110913, end: 20110913
  2. NIMBEX [Suspect]
     Indication: GENERAL ANAESTHESIA
     Dosage: ONCE A WEEK
     Route: 042
     Dates: start: 20110913, end: 20110913
  3. ATROPINE [Suspect]
     Dosage: ONCE/SINGLE ADMINISTRATION
     Route: 042
     Dates: start: 20110913, end: 20110913
  4. SUFENTA PRESERVATIVE FREE [Suspect]
     Dosage: ONCE/SINGLE ADMINISTRATION
     Route: 042
     Dates: start: 20110913, end: 20110913
  5. CEFAMANDOL PANPHARMA [Suspect]
     Indication: ANTIBIOTIC PROPHYLAXIS
     Dosage: ONCE/SINGLE ADMINISTRATION
     Route: 042
     Dates: start: 20110913, end: 20110913
  6. PROSTIGMIN BROMIDE [Suspect]
     Dosage: 0.5 MG/ML ONCE/SINGLE ADMINISTRATION
     Route: 042
     Dates: start: 20110913, end: 20110913
  7. TRAMADOL HCL [Suspect]
     Dosage: ONCE/SINGLE ADMINISTRATION
     Dates: start: 20110913, end: 20110913
  8. SEVOFLURANE [Suspect]
     Indication: MAINTENANCE OF ANAESTHESIA
     Dosage: ONCE/SINGLE ADMINISTRATION
     Route: 055
     Dates: start: 20110913, end: 20110913

REACTIONS (4)
  - SINUS TACHYCARDIA [None]
  - DYSARTHRIA [None]
  - BLOOD PRESSURE DECREASED [None]
  - ERYTHEMA [None]
